FAERS Safety Report 6013854-2 (Version None)
Quarter: 2008Q4

REPORT INFORMATION
  Report Type: 
  Country: None (occurrence: None)
  Receive Date: 20081218
  Receipt Date: 20081218
  Transmission Date: 20090506
  Serious: Yes (Hospitalization)
  Sender: FDA-Public Use
  Company Number: None

PATIENT
  Age: 66 Year
  Sex: Male
  Weight: 95.2554 kg

DRUGS (1)
  1. DETROL LA [Suspect]
     Indication: NOCTURIA
     Dosage: 4 MG  1 DAY OTIC
     Route: 001
     Dates: start: 20081205, end: 20081210

REACTIONS (7)
  - ABDOMINAL PAIN [None]
  - CHANGE OF BOWEL HABIT [None]
  - DEHYDRATION [None]
  - DYSPHAGIA [None]
  - EPISTAXIS [None]
  - FLATULENCE [None]
  - NAUSEA [None]
